FAERS Safety Report 6259943-9 (Version None)
Quarter: 2009Q3

REPORT INFORMATION
  Report Type: 
  Country: None (occurrence: None)
  Receive Date: 20090706
  Receipt Date: 20090706
  Transmission Date: 20100115
  Serious: Yes (Hospitalization)
  Sender: FDA-Public Use
  Company Number: None

PATIENT
  Age: 61 Year
  Sex: Female

DRUGS (1)
  1. ARIPRIPAZOLE 15 MG [Suspect]
     Dosage: ARIPRIPAZOLE 15 MG DAILY PO
     Route: 048

REACTIONS (3)
  - BREAST ABSCESS [None]
  - CELLULITIS [None]
  - PARKINSONISM [None]
